FAERS Safety Report 5399687-9 (Version None)
Quarter: 2007Q3

REPORT INFORMATION
  Report Type: 
  Country: None (occurrence: None)
  Receive Date: 20070727
  Receipt Date: 20070716
  Transmission Date: 20080115
  Serious: Yes (Disabling)
  Sender: FDA-Public Use
  Company Number: GB-BAUSCH-2007BL002390

PATIENT
  Age: 67 Year
  Sex: Female

DRUGS (2)
  1. PREDNISOLONE SODIUM PHOSPHATE [Suspect]
     Indication: ARTHRALGIA
     Route: 048
     Dates: start: 20070601, end: 20070620
  2. HERCEPTIN [Concomitant]
     Indication: BREAST CANCER
     Route: 042

REACTIONS (1)
  - DIABETES MELLITUS [None]
